FAERS Safety Report 5680538-X (Version None)
Quarter: 2008Q1

REPORT INFORMATION
  Report Type: 
  Country: None (occurrence: None)
  Receive Date: 20080326
  Receipt Date: 20080318
  Transmission Date: 20080703
  Serious: Yes (Death, Life-Threatening, Hospitalization)
  Sender: FDA-Public Use
  Company Number: GH-MERCK-0803USA03227

PATIENT
  Age: 5 Year
  Sex: Male
  Weight: 15 kg

DRUGS (2)
  1. MECTIZAN [Suspect]
     Route: 048
  2. ALBENDAZOLE [Suspect]
     Route: 065

REACTIONS (10)
  - ACUTE RESPIRATORY FAILURE [None]
  - ADVERSE DRUG REACTION [None]
  - LOWER RESPIRATORY TRACT INFECTION [None]
  - MUSCULAR WEAKNESS [None]
  - ORAL DISORDER [None]
  - PYREXIA [None]
  - SKIN LESION [None]
  - SWELLING [None]
  - TOXIC EPIDERMAL NECROLYSIS [None]
  - ULCER [None]
